FAERS Safety Report 5850734-7 (Version None)
Quarter: 2008Q3

REPORT INFORMATION
  Report Type: 
  Country: None (occurrence: None)
  Receive Date: 20080818
  Receipt Date: 20080804
  Transmission Date: 20090109
  Serious: Yes (Death, Other)
  Sender: FDA-Public Use
  Company Number: 2008-02137

PATIENT
  Age: 69 Year
  Sex: Female
  Weight: 35 kg

DRUGS (12)
  1. VELCADE [Suspect]
     Indication: MULTIPLE MYELOMA
     Dosage: 1.5 MG, INTRAVENOUS, 1.2 MG, INTRAVENOUS
     Route: 042
     Dates: start: 20080530, end: 20080602
  2. VELCADE [Suspect]
     Indication: MULTIPLE MYELOMA
     Dosage: 1.5 MG, INTRAVENOUS, 1.2 MG, INTRAVENOUS
     Route: 042
     Dates: start: 20080606, end: 20080606
  3. DEXAMETHASONE TAB [Suspect]
     Indication: MULTIPLE MYELOMA
     Dosage: 10 MG, ORAL
     Route: 048
     Dates: start: 20080530, end: 20080609
  4. ALENDRONATE SODIUM [Concomitant]
  5. RABEPRAZOLE SODIUM [Concomitant]
  6. AMITRIPTYLINE HCL [Concomitant]
  7. DEPAKENE [Concomitant]
  8. MARZULENE S (LEVOGLUTAMIDE, SODIUM GUALENATE) [Concomitant]
  9. MIYA-BM     /JPN/ (CLOSTRIDIUM BUTYRICUM) [Concomitant]
  10. MAGNESIUM OXIDE (MAGNESIUM OXIDE) [Concomitant]
  11. CLARITHROMYCIN [Concomitant]
  12. MUCOSTA (REBAMIPIDE) [Concomitant]

REACTIONS (8)
  - CONSTIPATION [None]
  - ENTERITIS INFECTIOUS [None]
  - HYPOALBUMINAEMIA [None]
  - HYPOCALCAEMIA [None]
  - HYPONATRAEMIA [None]
  - ILEUS PARALYTIC [None]
  - PLATELET COUNT DECREASED [None]
  - SEPTIC SHOCK [None]
